FAERS Safety Report 8589181-6 (Version None)
Quarter: 2012Q3

REPORT INFORMATION
  Report Type: 
  Country: None (occurrence: None)
  Receive Date: 20120813
  Receipt Date: 20120717
  Transmission Date: 20120928
  Serious: No
  Sender: FDA-Public Use
  Company Number: US-BAYER-2012-072212

PATIENT
  Age: 74 Year
  Sex: Male
  Weight: 79.365 kg

DRUGS (2)
  1. ALEVE (CAPLET) [Suspect]
     Indication: ANALGESIC THERAPY
     Dosage: 2 DF, QD
     Route: 048
  2. ASPIRIN [Concomitant]

REACTIONS (2)
  - INCREASED TENDENCY TO BRUISE [None]
  - BLOOD DISORDER [None]
